FAERS Safety Report 6482668-1 (Version None)
Quarter: 2009Q4

REPORT INFORMATION
  Report Type: 
  Country: None (occurrence: None)
  Receive Date: 20091209
  Receipt Date: 20091201
  Transmission Date: 20100525
  Serious: Yes (Hospitalization)
  Sender: FDA-Public Use
  Company Number: US-BIOGENIDEC-2009BI039716

PATIENT
  Age: 34 Year
  Sex: Female
  Weight: 74 kg

DRUGS (2)
  1. AVONEX [Suspect]
     Indication: MULTIPLE SCLEROSIS
     Route: 030
     Dates: start: 20081107, end: 20091023
  2. AVONEX [Suspect]
     Route: 030
     Dates: start: 20091113

REACTIONS (5)
  - CARDIAC ARREST [None]
  - COMA [None]
  - INFLUENZA LIKE ILLNESS [None]
  - RENAL FAILURE [None]
  - SEPTIC SHOCK [None]
